FAERS Safety Report 7351017-9 (Version None)
Quarter: 2011Q1

REPORT INFORMATION
  Report Type: 
  Country: None (occurrence: None)
  Receive Date: 20110314
  Receipt Date: 20110210
  Transmission Date: 20110831
  Serious: Yes (Other)
  Sender: FDA-Public Use
  Company Number: PHHY2011JP11367

PATIENT
  Age: 30 Year
  Sex: Male

DRUGS (2)
  1. CALSLOT [Concomitant]
     Dosage: 5 MG, UNK
     Route: 048
     Dates: start: 20100428
  2. EXFORGE [Suspect]
     Indication: HYPERTENSION
     Dosage: 01 DF, DAILY
     Route: 048
     Dates: start: 20101222

REACTIONS (4)
  - PLATELET COUNT DECREASED [None]
  - VISUAL IMPAIRMENT [None]
  - ANAEMIA [None]
  - HAEMOGLOBIN DECREASED [None]
